FAERS Safety Report 5808212-7 (Version None)
Quarter: 2008Q3

REPORT INFORMATION
  Report Type: 
  Country: None (occurrence: None)
  Receive Date: 20080709
  Receipt Date: 20080624
  Transmission Date: 20090109
  Serious: Yes (Hospitalization)
  Sender: FDA-Public Use
  Company Number: 2008BI016218

PATIENT
  Age: 43 Year
  Sex: Male

DRUGS (1)
  1. TYSABRI [Suspect]
     Indication: MULTIPLE SCLEROSIS
     Dosage: IV; 300 MG; QM; IV
     Route: 042
     Dates: end: 20080509

REACTIONS (5)
  - ANAEMIA [None]
  - ASTHENIA [None]
  - DUODENAL ULCER [None]
  - FALL [None]
  - RESPIRATORY FAILURE [None]
